FAERS Safety Report 10687687 (Version 1)
Quarter: 2015Q1

REPORT INFORMATION
  Report Type: Spontaneous
  Country: US (occurrence: US)
  Receive Date: 20150102
  Receipt Date: 20150102
  Transmission Date: 20150720
  Serious: Yes (Death, Hospitalization)
  Sender: FDA-Public Use
  Company Number: PHHY2014US168023

PATIENT
  Age: 26 Year
  Sex: Male

DRUGS (3)
  1. AMLODIPINE [Suspect]
     Active Substance: AMLODIPINE BESYLATE
     Indication: HYPERTENSION
     Dosage: UNK
     Route: 065
  2. METOPROLOL [Suspect]
     Active Substance: METOPROLOL
     Indication: HYPERTENSION
     Dosage: UNK
     Route: 065
  3. LISINOPRIL. [Suspect]
     Active Substance: LISINOPRIL
     Indication: HYPERTENSION
     Dosage: UNK
     Route: 065

REACTIONS (10)
  - Hypoxia [Not Recovered/Not Resolved]
  - Intentional overdose [Unknown]
  - Acidosis [Not Recovered/Not Resolved]
  - Bradycardia [Not Recovered/Not Resolved]
  - Acute kidney injury [Not Recovered/Not Resolved]
  - Anuria [Unknown]
  - Hyperkalaemia [Recovering/Resolving]
  - Pulmonary oedema [Unknown]
  - Hypotension [Not Recovered/Not Resolved]
  - Death [Fatal]
